FAERS Safety Report 4432391-X (Version None)
Quarter: 2004Q3

REPORT INFORMATION
  Report Type: 
  Country: None (occurrence: None)
  Receive Date: 20040825
  Receipt Date: 20010115
  Transmission Date: 20050211
  Serious: Yes (Hospitalization, Disabling, Congenital Anomaly)
  Sender: FDA-Public Use
  Company Number: FR-GLAXOSMITHKLINE-B0096646A

PATIENT
  Sex: Male
  Weight: 3.5 kg

DRUGS (11)
  1. ZIDOVUDINE [Suspect]
     Indication: ANTIVIRAL PROPHYLAXIS
     Route: 048
     Dates: start: 19980306, end: 20030309
  2. LAMIVUDINE [Suspect]
     Indication: ANTIVIRAL PROPHYLAXIS
     Route: 048
     Dates: start: 19980306, end: 20030309
  3. ZIDOVUDINE [Suspect]
     Indication: HIV INFECTION
  4. LAMIVUDINE [Suspect]
     Indication: HIV INFECTION
  5. HIVID [Suspect]
     Indication: HIV INFECTION
  6. RETROVIR [Suspect]
     Dates: start: 20030306, end: 20030306
  7. BACTRIM [Concomitant]
     Route: 065
  8. GYNOPEVARYL [Concomitant]
  9. PEVARYL [Concomitant]
  10. SPASFON [Concomitant]
  11. MULTIVITAMIN [Concomitant]

REACTIONS (21)
  - ABNORMAL BEHAVIOUR [None]
  - AGGRESSION [None]
  - ANAEMIA [None]
  - ANAEMIA NEONATAL [None]
  - CAESAREAN SECTION [None]
  - CARDIAC MURMUR [None]
  - CONGENITAL VENTRICULAR SEPTAL DEFECT [None]
  - DISTURBANCE IN SOCIAL BEHAVIOUR [None]
  - DRUG EXPOSURE DURING PREGNANCY [None]
  - EXTRASYSTOLES [None]
  - HEPATOMEGALY [None]
  - HEPATOSPLENOMEGALY [None]
  - HYPERTONIA [None]
  - HYPOTONIA [None]
  - HYPOTONIA NEONATAL [None]
  - NEONATAL RESPIRATORY DISTRESS SYNDROME [None]
  - NEONATAL TACHYPNOEA [None]
  - PULMONARY HYPERTENSION [None]
  - RESPIRATORY DISTRESS [None]
  - SPEECH DISORDER DEVELOPMENTAL [None]
  - TACHYPNOEA [None]
